FAERS Safety Report 8290797-5 (Version None)
Quarter: 2012Q2

REPORT INFORMATION
  Report Type: 
  Country: None (occurrence: None)
  Receive Date: 20120413
  Receipt Date: 20120413
  Transmission Date: 20120825
  Serious: Yes (Other)
  Sender: FDA-Public Use
  Company Number: None

PATIENT
  Age: 46 Year
  Sex: Female

DRUGS (1)
  1. GLIPIZIDE [Suspect]
     Indication: DIABETES MELLITUS
     Dosage: 25 MG 1 X 1 DAY ORAL MED
     Route: 048

REACTIONS (4)
  - WEIGHT INCREASED [None]
  - BLOOD GLUCOSE INCREASED [None]
  - DYSPNOEA [None]
  - HOSPITALISATION [None]
